FAERS Safety Report 7108316-5 (Version None)
Quarter: 2010Q4

REPORT INFORMATION
  Report Type: 
  Country: None (occurrence: None)
  Receive Date: 20101115
  Receipt Date: 20101115
  Transmission Date: 20110411
  Serious: Yes (Other)
  Sender: FDA-Public Use
  Company Number: None

PATIENT
  Age: 59 Year
  Sex: Male
  Weight: 99.7913 kg

DRUGS (2)
  1. OXYCONTIN [Suspect]
     Indication: PAIN
     Dosage: 80MG 3 PER DAY
     Dates: start: 20100927
  2. OXYCONTIN [Suspect]
     Indication: PAIN
     Dosage: 20 MG 3 PER DAY
     Dates: start: 20101013

REACTIONS (8)
  - ABDOMINAL DISTENSION [None]
  - CONDITION AGGRAVATED [None]
  - DRUG INEFFECTIVE [None]
  - FEELING ABNORMAL [None]
  - FLATULENCE [None]
  - GASTROINTESTINAL DISORDER [None]
  - PAIN [None]
  - PRODUCT FORMULATION ISSUE [None]
